FAERS Safety Report 6029532-X (Version None)
Quarter: 2009Q1

REPORT INFORMATION
  Report Type: 
  Country: None (occurrence: None)
  Receive Date: 20090107
  Receipt Date: 20090105
  Transmission Date: 20090719
  Serious: No
  Sender: FDA-Public Use
  Company Number: US-JNJFOC-20090100610

PATIENT
  Sex: Female
  Weight: 106.14 kg

DRUGS (3)
  1. FENTANYL TRANSDERMAL SYSTEM [Suspect]
     Indication: COLLAPSE OF LUNG
     Route: 062
  2. FENTANYL TRANSDERMAL SYSTEM [Suspect]
     Indication: RIB FRACTURE
     Route: 062
  3. LYRICA [Concomitant]
     Indication: POLYNEUROPATHY
     Dosage: 75 TWICE DAILY
     Route: 048

REACTIONS (1)
  - WRONG TECHNIQUE IN DRUG USAGE PROCESS [None]
